FAERS Safety Report 22671823 (Version 4)
Quarter: 2024Q3

REPORT INFORMATION
  Report Type: Report from Study
  Country: US (occurrence: US)
  Receive Date: 20230705
  Receipt Date: 20240925
  Transmission Date: 20241016
  Serious: Yes (Hospitalization)
  Sender: GLAXOSMITHKLINE
  Company Number: US-GLAXOSMITHKLINE-US2021AMR251835

PATIENT

DRUGS (9)
  1. NIRAPARIB [Suspect]
     Active Substance: NIRAPARIB
     Indication: Ovarian cancer
     Dosage: 300 MG, QD
     Route: 048
     Dates: start: 20211130, end: 20211224
  2. NIRAPARIB [Suspect]
     Active Substance: NIRAPARIB
     Dosage: 100 MG, QD
     Route: 048
     Dates: start: 202201
  3. NIRAPARIB [Suspect]
     Active Substance: NIRAPARIB
     Dosage: 200 MG, QD
     Dates: start: 202204
  4. NIRAPARIB [Suspect]
     Active Substance: NIRAPARIB
     Dosage: 100 MG, QD
     Dates: start: 20220608
  5. NIRAPARIB [Suspect]
     Active Substance: NIRAPARIB
     Dosage: UNK UNK, (200 MG ON MON, WED AND FRIDAYS; 100 MG ON SUN, TUES AND SAT)
     Route: 048
     Dates: start: 20220614
  6. NIRAPARIB [Suspect]
     Active Substance: NIRAPARIB
     Dosage: UNK UNK, (200 MG ON MON, WED AND FRIDAYS; 100 MG ON SUN, TUES AND SAT)
     Route: 048
  7. NIRAPARIB [Suspect]
     Active Substance: NIRAPARIB
     Dosage: UNK UNK, (200 MG MON, WED AND FRI;100 MG ON SUN, TUES, THURS AND SAT)
     Route: 048
  8. NIRAPARIB [Suspect]
     Active Substance: NIRAPARIB
     Dosage: UNK UNK, (200 MG ON MON, WED AND FRIDAYS; 100 MG ON SUN, TUES, AND SAT)
     Route: 048
     Dates: end: 20230615
  9. NIRAPARIB [Suspect]
     Active Substance: NIRAPARIB
     Dosage: UNK UNK, (200 MG ON MON, WED AND FRIDAYS; 100 MG ON SUN, TUES, THURS AND SAT)
     Route: 048
     Dates: start: 202306, end: 202308

REACTIONS (11)
  - Hernia [Recovering/Resolving]
  - Contusion [Not Recovered/Not Resolved]
  - Epistaxis [Recovered/Resolved]
  - Platelet count decreased [Not Recovered/Not Resolved]
  - Oral surgery [Unknown]
  - Urinary tract infection [Recovered/Resolved]
  - Blood urine present [Recovered/Resolved]
  - Procedural pain [Recovered/Resolved]
  - Decreased activity [Unknown]
  - Off label use [Unknown]
  - Product dose omission in error [Unknown]

NARRATIVE: CASE EVENT DATE: 20220607
